FAERS Safety Report 8399726-7 (Version None)
Quarter: 2012Q2

REPORT INFORMATION
  Report Type: 
  Country: None (occurrence: None)
  Receive Date: 20120323
  Receipt Date: 20110811
  Transmission Date: 20120825
  Serious: Yes (Hospitalization, Other)
  Sender: FDA-Public Use
  Company Number: 163-21880-11072479

PATIENT
  Age: 77 Year
  Sex: Male

DRUGS (23)
  1. AMBIEN [Concomitant]
  2. ARANESP [Concomitant]
  3. FOSINOPRIL (FOSINOPRIL) (TABLETS) [Concomitant]
  4. FUROSEMIDE [Concomitant]
  5. MINOXIDIL [Concomitant]
  6. REVLIMID [Suspect]
     Indication: MULTIPLE MYELOMA
     Dosage: 25 MG, 1 IN 1 D, PO 25 MG, 1 IN 1 D, PO 25 MG, 1 IN 1 D, PO
     Route: 048
     Dates: start: 20090601
  7. REVLIMID [Suspect]
     Indication: MULTIPLE MYELOMA
     Dosage: 25 MG, 1 IN 1 D, PO 25 MG, 1 IN 1 D, PO 25 MG, 1 IN 1 D, PO
     Route: 048
     Dates: start: 20110501, end: 20110707
  8. REVLIMID [Suspect]
     Indication: MULTIPLE MYELOMA
     Dosage: 25 MG, 1 IN 1 D, PO 25 MG, 1 IN 1 D, PO 25 MG, 1 IN 1 D, PO
     Route: 048
     Dates: start: 20110701
  9. ASPIRIN [Concomitant]
  10. SIMVASTATIN [Concomitant]
  11. CEFTRIAXONE [Concomitant]
  12. ALLOPURINOL [Concomitant]
  13. VITAMIN D (ERGOCALCIFEROL) (UNKNOWN) [Concomitant]
  14. ZYRTEC [Concomitant]
  15. CARVEDILOL (CARVEDILOL) (TABLETS) [Concomitant]
  16. COMPAZINE (PROCHLORPERAZINE EDISYLATE) (UNKNOWN) [Concomitant]
  17. ELAVIL (AMITRIPTYLINE HYDROCHLORIDE) (UNKNOWN) [Concomitant]
  18. AZASITE (AZITHROMYCIN) (1 PERCENT, DROPS) [Concomitant]
  19. LIPITOR [Concomitant]
  20. DECADRON [Concomitant]
  21. PERCOCET [Concomitant]
  22. ZANTAC [Concomitant]
  23. SOLU-CORTEF (HYDROCORTISONE SODIUM SUCCINATE) (UNKNOWN) [Concomitant]

REACTIONS (2)
  - ANAEMIA [None]
  - FEBRILE NEUTROPENIA [None]
